FAERS Safety Report 10514402 (Version 1)
Quarter: 2014Q4

REPORT INFORMATION
  Report Type: Spontaneous
  Country: NZ (occurrence: NZ)
  Receive Date: 20141013
  Receipt Date: 20141013
  Transmission Date: 20150528
  Serious: Yes (Hospitalization)
  Sender: FDA-Public Use
  Company Number: NZ-GE HEALTHCARE MEDICAL DIAGNOSTICS-VISP-PR-1410S-0443

PATIENT
  Age: 76 Year
  Sex: Female
  Weight: 102 kg

DRUGS (3)
  1. VISIPAQUE [Suspect]
     Active Substance: IODIXANOL
     Indication: HYPERTENSION
     Route: 042
     Dates: start: 20141001, end: 20141001
  2. VISIPAQUE [Suspect]
     Active Substance: IODIXANOL
     Indication: DYSPNOEA
  3. VISIPAQUE [Suspect]
     Active Substance: IODIXANOL
     Indication: DIAGNOSTIC PROCEDURE

REACTIONS (6)
  - Pruritus [Not Recovered/Not Resolved]
  - Pruritus [Not Recovered/Not Resolved]
  - Throat irritation [Not Recovered/Not Resolved]
  - Eye pruritus [Not Recovered/Not Resolved]
  - Swelling face [Not Recovered/Not Resolved]
  - Rash [Not Recovered/Not Resolved]

NARRATIVE: CASE EVENT DATE: 20141001
